FAERS Safety Report 14268373 (Version 1)
Quarter: 2017Q4

REPORT INFORMATION
  Report Type: Spontaneous
  Country: CN (occurrence: CN)
  Receive Date: 20171211
  Receipt Date: 20171211
  Transmission Date: 20180321
  Serious: Yes (Other)
  Sender: FDA-Public Use
  Company Number: CN-009507513-1712CHN001071

PATIENT
  Age: 12 Day
  Sex: Male
  Weight: 2.54 kg

DRUGS (6)
  1. TIENAM [Suspect]
     Active Substance: CILASTATIN SODIUM\IMIPENEM
     Indication: INFECTION
     Dosage: 0.098 G, TID (ROUTE: PUMP INJECTION)
     Dates: start: 20170914, end: 20170929
  2. EPOCELIN [Suspect]
     Active Substance: CEFTIZOXIME SODIUM
     Indication: INFECTION
     Dosage: 1 G, TID (ROUTE: PUMP INJECTION)
     Dates: start: 20170929, end: 20171006
  3. DEXTROSE. [Suspect]
     Active Substance: DEXTROSE
     Dosage: 10 ML, TID (ROUTE: PUMP INJECTION)
     Dates: start: 20170914, end: 20170929
  4. SODIUM CHLORIDE. [Suspect]
     Active Substance: SODIUM CHLORIDE
     Dosage: 12 ML, BID (ROUTE: PUMP INJECTION)
     Dates: start: 20170914, end: 20170929
  5. OCTREOTIDE ACETATE. [Suspect]
     Active Substance: OCTREOTIDE ACETATE
     Dosage: 0.1 MG, BID (ROUTE: PUMP INJECTION)
     Dates: start: 20170922, end: 20171006
  6. SODIUM CHLORIDE. [Suspect]
     Active Substance: SODIUM CHLORIDE
     Dosage: 10 ML, TID (ROUTE: PUMP INJECTION)
     Dates: start: 20170929, end: 20171006

REACTIONS (2)
  - Toxic epidermal necrolysis [Recovering/Resolving]
  - Dermatitis exfoliative [Recovering/Resolving]

NARRATIVE: CASE EVENT DATE: 20171002
